FAERS Safety Report 10253538 (Version 1)
Quarter: 2014Q2

REPORT INFORMATION
  Report Type: Spontaneous
  Country: GB (occurrence: GB)
  Receive Date: 20140623
  Receipt Date: 20140623
  Transmission Date: 20141212
  Serious: Yes (Other)
  Sender: FDA-Public Use
  Company Number: GB-ACTAVIS-2014-13246

PATIENT
  Age: 35 Year
  Sex: Female

DRUGS (2)
  1. GABAPENTIN (UNKNOWN) [Suspect]
     Indication: HEADACHE
     Dosage: 300 MG, TID
     Route: 048
     Dates: start: 20140429, end: 20140429
  2. TOPIRAMATE [Concomitant]
     Indication: PRODUCT USED FOR UNKNOWN INDICATION
     Dosage: UNK
     Route: 065

REACTIONS (1)
  - Anaphylactic reaction [Recovered/Resolved]
